FAERS Safety Report 8270595-9 (Version None)
Quarter: 2012Q2

REPORT INFORMATION
  Report Type: 
  Country: None (occurrence: None)
  Receive Date: 20120410
  Receipt Date: 20120406
  Transmission Date: 20120825
  Serious: Yes (Death, Life-Threatening, Hospitalization, Other)
  Sender: FDA-Public Use
  Company Number: IL-SANOFI-AVENTIS-2011SA075276

PATIENT
  Age: 72 Year
  Sex: Female
  Weight: 55 kg

DRUGS (19)
  1. DOCETAXEL [Suspect]
     Dosage: FORM: VIALDOSE LEVEL: 75 MG/M2
     Route: 042
     Dates: start: 20100728, end: 20100728
  2. DOCETAXEL [Suspect]
     Route: 065
  3. CITALOPRAM HYDROBROMIDE [Concomitant]
     Route: 048
  4. TRASTUZUMAB [Suspect]
     Route: 042
     Dates: start: 20100728, end: 20100728
  5. MICROPIRIN [Concomitant]
     Route: 048
  6. BONDORMIN [Concomitant]
     Route: 048
  7. BEVACIZUMAB [Suspect]
     Dosage: DOSE LEVEL: 15 MG/KG
     Route: 042
     Dates: start: 20100728, end: 20100728
  8. BEVACIZUMAB [Suspect]
     Route: 065
  9. CARBOPLATIN [Suspect]
     Dosage: FORM: VIALDOSE LEVEL: 5 AUC
     Route: 042
     Dates: start: 20101025, end: 20101025
  10. TRASTUZUMAB [Suspect]
     Dosage: DOSE LEVEL:6 MG/KG
     Route: 042
     Dates: start: 20101025, end: 20101025
  11. CARBOPLATIN [Suspect]
     Dosage: FORM: VIALDOSE LEVEL: 5 AUC
     Route: 042
     Dates: start: 20100728, end: 20100728
  12. BEVACIZUMAB [Suspect]
     Dosage: DOSE LEVEL: 15 MG/KG
     Route: 042
     Dates: start: 20101025, end: 20101025
  13. RAMIPRIL [Concomitant]
     Route: 048
  14. DISOTHIAZIDE [Concomitant]
     Route: 048
  15. DOCETAXEL [Suspect]
     Dosage: FORM: VIALDOSE LEVEL: 75 MG/M2
     Route: 042
     Dates: start: 20101025, end: 20101025
  16. CARBOPLATIN [Suspect]
     Route: 065
  17. SIMVASTATIN [Concomitant]
     Route: 048
  18. TRASTUZUMAB [Suspect]
     Route: 065
  19. OMEPRAZOLE [Concomitant]
     Route: 048
     Dates: start: 20000101

REACTIONS (7)
  - CEREBRAL HAEMORRHAGE [None]
  - MYOCARDIAL INFARCTION [None]
  - URINARY TRACT INFECTION [None]
  - FEBRILE NEUTROPENIA [None]
  - NEUTROPENIA [None]
  - MULTI-ORGAN FAILURE [None]
  - SEPSIS [None]
